FAERS Safety Report 6289235-3 (Version None)
Quarter: 2009Q3

REPORT INFORMATION
  Report Type: 
  Country: None (occurrence: None)
  Receive Date: 20090729
  Receipt Date: 20071120
  Transmission Date: 20100115
  Serious: Yes (Hospitalization, Other)
  Sender: FDA-Public Use
  Company Number: US-ASTRAZENECA-2006UW27443

PATIENT
  Age: 446 Month
  Sex: Female
  Weight: 88 kg

DRUGS (13)
  1. SEROQUEL [Suspect]
     Indication: BIPOLAR DISORDER
     Route: 048
     Dates: start: 20000109, end: 20050618
  2. SEROQUEL [Suspect]
     Indication: DEPRESSION
     Route: 048
     Dates: start: 20000109, end: 20050618
  3. SEROQUEL [Suspect]
     Indication: ANXIETY
     Route: 048
     Dates: start: 20000109, end: 20050618
  4. SEROQUEL [Suspect]
     Dosage: 25-900 MG
     Route: 048
     Dates: start: 20001201
  5. SEROQUEL [Suspect]
     Dosage: 25-900 MG
     Route: 048
     Dates: start: 20001201
  6. SEROQUEL [Suspect]
     Dosage: 25-900 MG
     Route: 048
     Dates: start: 20001201
  7. CLOZARIL [Concomitant]
  8. CARBITROL [Concomitant]
     Dosage: 400-600 MG
     Route: 048
  9. ATIVAN [Concomitant]
     Indication: ANXIETY
     Dosage: 1.5-4 MG
     Route: 048
     Dates: start: 20010111, end: 20030428
  10. NEURONTIN [Concomitant]
     Indication: PAIN
     Dosage: 1800-4800 MG
     Route: 048
     Dates: start: 19980813
  11. NEURONTIN [Concomitant]
     Indication: MIGRAINE
     Dosage: 1800-4800 MG
     Route: 048
     Dates: start: 19980813
  12. METHOCARBAMOL [Concomitant]
     Route: 048
     Dates: start: 20020521
  13. ACCUPRIL [Concomitant]
     Indication: HYPERTENSION
     Route: 048
     Dates: start: 20001209

REACTIONS (7)
  - BIPOLAR DISORDER [None]
  - BLOOD CHOLESTEROL INCREASED [None]
  - CONVULSION [None]
  - DIABETES MELLITUS [None]
  - DIABETIC COMA [None]
  - HYPOGLYCAEMIA [None]
  - KETOACIDOSIS [None]
